FAERS Safety Report 19913459 (Version 1)
Quarter: 2021Q4

REPORT INFORMATION
  Report Type: Spontaneous
  Country: SI (occurrence: SI)
  Receive Date: 20211004
  Receipt Date: 20211004
  Transmission Date: 20220303
  Serious: Yes (Other)
  Sender: FDA-Public Use
  Company Number: SI-002147023-NVSC2021SI121835

PATIENT
  Age: 70 Year
  Sex: Female

DRUGS (8)
  1. PANTOPRAZOLE [Suspect]
     Active Substance: PANTOPRAZOLE
     Indication: Product used for unknown indication
     Dosage: 20 MILLIGRAM, AM (20 MG (IN THE MORNING)
     Route: 065
  2. TACROLIMUS [Suspect]
     Active Substance: TACROLIMUS
     Indication: Product used for unknown indication
     Dosage: 3.5 MILLIGRAM, AM (3.5 MG (IN THE MORNING)
     Route: 065
  3. BISOPROLOL [Suspect]
     Active Substance: BISOPROLOL
     Indication: Product used for unknown indication
     Dosage: 1.25 MILLIGRAM, AM (1.25 MG (IN THE MORNING)
     Route: 065
  4. DILTIAZEM W/HYDROCHLOROTHIAZIDE [Concomitant]
     Indication: Product used for unknown indication
     Dosage: 60 MILLIGRAM, QD (30 MG, BID)
     Route: 065
  5. CALCIUM CARBONATE [Concomitant]
     Active Substance: CALCIUM CARBONATE
     Indication: Product used for unknown indication
     Dosage: 1 GRAM, QD
     Route: 065
  6. MAGNESIUM CITRATE [Concomitant]
     Active Substance: MAGNESIUM CITRATE
     Indication: Product used for unknown indication
     Dosage: 150 MILLIGRAM, AM (150 MG (IN THE MORNING)
     Route: 065
  7. AZATHIOPRINE [Concomitant]
     Active Substance: AZATHIOPRINE
     Indication: Product used for unknown indication
     Dosage: 75 MILLIGRAM, AM (75 MG (IN THE MORNING)
     Route: 065
  8. CHOLECALCIFEROL [Concomitant]
     Active Substance: CHOLECALCIFEROL
     Indication: Product used for unknown indication
     Dosage: 35 GTT DROPS, QW (35 DRP (PER WEEK)
     Route: 065

REACTIONS (4)
  - Escherichia urinary tract infection [Unknown]
  - General physical health deterioration [Unknown]
  - Abdominal discomfort [Unknown]
  - Diarrhoea [Unknown]
